FAERS Safety Report 15537312 (Version 1)
Quarter: 2018Q4

REPORT INFORMATION
  Report Type: Spontaneous
  Country: BR (occurrence: BR)
  Receive Date: 20181022
  Receipt Date: 20181022
  Transmission Date: 20190205
  Serious: Yes (Death, Other)
  Sender: FDA-Public Use
  Company Number: BR-PFIZER INC-2018425952

PATIENT
  Age: 85 Year
  Sex: Female
  Weight: 46 kg

DRUGS (14)
  1. LEVOID [Concomitant]
     Active Substance: LEVOTHYROXINE
     Dosage: 88 MCG 1 TABLET/DAY
  2. VENLAFAXINE [Concomitant]
     Active Substance: VENLAFAXINE HYDROCHLORIDE
     Dosage: 75 MG 1 TABLET/DAY
  3. ELIQUIS [Concomitant]
     Active Substance: APIXABAN
     Dosage: 2,5 MG 2 TABLET/DAY
  4. PROLOPA [Concomitant]
     Active Substance: BENSERAZIDE\LEVODOPA
     Dosage: 2 TABLET/DAY
  5. DOMPERIDONE [Concomitant]
     Active Substance: DOMPERIDONE
     Dosage: 10 MG 3 TABLET/DAY
  6. TAZOCIN [Suspect]
     Active Substance: PIPERACILLIN SODIUM\TAZOBACTAM SODIUM
     Dosage: UNK
  7. GRANULOKINE [Suspect]
     Active Substance: FILGRASTIM
     Dosage: UNK
  8. GENUXAL [Suspect]
     Active Substance: CYCLOPHOSPHAMIDE
     Dosage: 568.4 MG, UNK
     Route: 042
     Dates: start: 20180205
  9. RITMONORM [Concomitant]
     Active Substance: PROPAFENONE HYDROCHLORIDE
     Dosage: 1/2 TABLET/DAY
  10. OMEPRAZOLE. [Concomitant]
     Active Substance: OMEPRAZOLE
     Dosage: 20 MG 1 TABLET/DAY
  11. ECALTA [Suspect]
     Active Substance: ANIDULAFUNGIN
     Dosage: UNK
  12. MABTHERA [Suspect]
     Active Substance: RITUXIMAB
     Indication: NON-HODGKIN^S LYMPHOMA
     Dosage: UNK
     Route: 042
     Dates: start: 20180205
  13. FAULDVINCRI [Suspect]
     Active Substance: VINCRISTINE SULFATE
     Dosage: 1 MG, UNK
     Route: 042
     Dates: start: 20180205
  14. DEXAMETHASONE. [Concomitant]
     Active Substance: DEXAMETHASONE
     Dosage: 4 MG 2 TABLET/DAY

REACTIONS (1)
  - Acute respiratory failure [Fatal]
